FAERS Safety Report 25389700 (Version 1)
Quarter: 2025Q2

REPORT INFORMATION
  Report Type: Spontaneous
  Country: US (occurrence: None)
  Receive Date: 20250602
  Receipt Date: 20250602
  Transmission Date: 20250716
  Serious: Yes (Disabling)
  Sender: FDA-CTU
  Company Number: None

PATIENT
  Age: 64 Year
  Sex: Female

DRUGS (1)
  1. ESCITALOPRAM OXALATE [Suspect]
     Active Substance: ESCITALOPRAM OXALATE
     Indication: Adjustment disorder with depressed mood

REACTIONS (15)
  - Dizziness [None]
  - Blunted affect [None]
  - Withdrawal syndrome [None]
  - Depression [None]
  - Emotional disorder [None]
  - Nervous system disorder [None]
  - Brain fog [None]
  - Disturbance in attention [None]
  - Hyperhidrosis [None]
  - Nausea [None]
  - Dysphagia [None]
  - Bedridden [None]
  - Injury [None]
  - Product use complaint [None]
  - Emotional disorder [None]

NARRATIVE: CASE EVENT DATE: 20250219
